FAERS Safety Report 15585969 (Version 1)
Quarter: 2018Q4

REPORT INFORMATION
  Report Type: Report from Study
  Country: None (occurrence: IT)
  Receive Date: 20181105
  Receipt Date: 20181105
  Transmission Date: 20190205
  Serious: Yes (Other)
  Sender: FDA-Public Use
  Company Number: IT-BIOVITRUM-2017IT0277

PATIENT
  Sex: Female
  Weight: 56.4 kg

DRUGS (8)
  1. ORFADIN [Suspect]
     Active Substance: NITISINONE
     Dates: start: 20111014
  2. ORFADIN [Suspect]
     Active Substance: NITISINONE
     Dates: start: 20151223, end: 20170630
  3. ORFADIN [Suspect]
     Active Substance: NITISINONE
     Route: 048
     Dates: start: 20170701
  4. ORFADIN [Suspect]
     Active Substance: NITISINONE
     Indication: TYROSINAEMIA
     Dates: start: 20020314
  5. ORFADIN [Suspect]
     Active Substance: NITISINONE
     Dates: start: 20100210
  6. ORFADIN [Suspect]
     Active Substance: NITISINONE
     Dates: start: 20070615
  7. ORFADIN [Suspect]
     Active Substance: NITISINONE
     Dates: start: 20140924, end: 20151222
  8. ORFADIN [Suspect]
     Active Substance: NITISINONE
     Dates: start: 20140218

REACTIONS (6)
  - Amino acid level decreased [Unknown]
  - Haematology test abnormal [Unknown]
  - Succinylacetone increased [Unknown]
  - Amino acid level increased [Unknown]
  - Hepatic function abnormal [Unknown]
  - Renal impairment [Unknown]
